FAERS Safety Report 7509123-1 (Version None)
Quarter: 2011Q2

REPORT INFORMATION
  Report Type: 
  Country: None (occurrence: None)
  Receive Date: 20110527
  Receipt Date: 20110518
  Transmission Date: 20111010
  Serious: Yes (Hospitalization)
  Sender: FDA-Public Use
  Company Number: US-AMGEN-USASP2011025858

PATIENT
  Age: 59 Year
  Sex: Male

DRUGS (2)
  1. ENBREL [Suspect]
     Indication: RHEUMATOID ARTHRITIS
     Dosage: 50 MG, QWK
     Dates: start: 20071201, end: 20110201
  2. HYDROCODONE                        /00060002/ [Concomitant]

REACTIONS (7)
  - IMPAIRED HEALING [None]
  - SCAB [None]
  - BACK PAIN [None]
  - CHEST PAIN [None]
  - THERAPEUTIC RESPONSE DECREASED [None]
  - DYSPNOEA [None]
  - CORONARY ARTERY OCCLUSION [None]
